FAERS Safety Report 8030422-1 (Version None)
Quarter: 2012Q1

REPORT INFORMATION
  Report Type: 
  Country: None (occurrence: None)
  Receive Date: 20120109
  Receipt Date: 20120109
  Transmission Date: 20120608
  Serious: Yes (Life-Threatening, Hospitalization, Other)
  Sender: FDA-Public Use
  Company Number: None

PATIENT
  Age: 19 Year
  Sex: Female
  Weight: 58.967 kg

DRUGS (1)
  1. GEODON [Suspect]
     Indication: BIPOLAR DISORDER
     Dosage: 20 + 40 MG SAMPLE PACKS
     Route: 048
     Dates: start: 20081201, end: 20081202

REACTIONS (7)
  - APHASIA [None]
  - MUSCLE DISORDER [None]
  - DYSPNOEA [None]
  - VISUAL IMPAIRMENT [None]
  - FATIGUE [None]
  - DYSTONIA [None]
  - DIZZINESS [None]
